FAERS Safety Report 5655768-3 (Version None)
Quarter: 2008Q1

REPORT INFORMATION
  Report Type: 
  Country: None (occurrence: None)
  Receive Date: 20080307
  Receipt Date: 20080227
  Transmission Date: 20080703
  Serious: Yes (Hospitalization)
  Sender: FDA-Public Use
  Company Number: FR-ABBOTT-08P-056-0440223-00

PATIENT
  Sex: Female

DRUGS (5)
  1. DEPAKENE [Suspect]
     Indication: EPILEPSY
     Route: 048
     Dates: end: 20071008
  2. DEPAKENE [Suspect]
     Route: 048
     Dates: start: 20071008
  3. PIPERACILLIN AND TAZOBACTAM [Suspect]
     Indication: LUNG DISORDER
     Route: 042
     Dates: start: 20071006, end: 20071008
  4. PIPERACILLIN AND TAZOBACTAM [Suspect]
     Dates: start: 20071008, end: 20071010
  5. LEVOTHYROXINE SODIUM [Concomitant]
     Indication: POST PROCEDURAL HYPOTHYROIDISM
     Route: 048

REACTIONS (8)
  - CONFUSIONAL STATE [None]
  - DELIRIUM [None]
  - GENERAL PHYSICAL HEALTH DETERIORATION [None]
  - ILL-DEFINED DISORDER [None]
  - LUNG DISORDER [None]
  - MOBILITY DECREASED [None]
  - PYREXIA [None]
  - SOMNOLENCE [None]
